FAERS Safety Report 7573951-7 (Version None)
Quarter: 2011Q2

REPORT INFORMATION
  Report Type: 
  Country: None (occurrence: None)
  Receive Date: 20110627
  Receipt Date: 20110617
  Transmission Date: 20111010
  Serious: Yes (Hospitalization)
  Sender: FDA-Public Use
  Company Number: GB-TEVA-285684ISR

PATIENT
  Age: 57 Year
  Sex: Male

DRUGS (3)
  1. RANOLAZINE [Interacting]
     Indication: ANGINA PECTORIS
     Dosage: 1000 MILLIGRAM;
     Route: 048
     Dates: start: 20110506, end: 20110522
  2. SIMVASTATIN [Suspect]
     Indication: HYPERCHOLESTEROLAEMIA
     Route: 048
     Dates: start: 20060724, end: 20110522
  3. RANOLAZINE [Interacting]
     Dosage: 750 MILLIGRAM;
     Route: 048
     Dates: start: 20110407, end: 20110505

REACTIONS (8)
  - MALAISE [None]
  - CHROMATURIA [None]
  - RHABDOMYOLYSIS [None]
  - BLOOD CREATINE PHOSPHOKINASE INCREASED [None]
  - DRUG INTERACTION [None]
  - ARTHRALGIA [None]
  - MUSCULOSKELETAL PAIN [None]
  - VOMITING [None]
